FAERS Safety Report 21904319 (Version 1)
Quarter: 2023Q1

REPORT INFORMATION
  Report Type: Spontaneous
  Country: US (occurrence: None)
  Receive Date: 20230124
  Receipt Date: 20230124
  Transmission Date: 20230418
  Serious: Yes (Hospitalization)
  Sender: FDA-Public Use
  Company Number: None

PATIENT
  Sex: Male
  Weight: 77.1 kg

DRUGS (3)
  1. BENDAMUSTINE HYDROCHLORIDE [Suspect]
     Active Substance: BENDAMUSTINE HYDROCHLORIDE
     Dates: end: 20221202
  2. CYTARABINE [Suspect]
     Active Substance: CYTARABINE
     Dates: end: 20230107
  3. RITUXIMAB [Suspect]
     Active Substance: RITUXIMAB
     Dates: end: 20221227

REACTIONS (7)
  - Febrile neutropenia [None]
  - SARS-CoV-2 test positive [None]
  - Chest X-ray abnormal [None]
  - Cough [None]
  - Heart rate increased [None]
  - Haemoglobin decreased [None]
  - Platelet count decreased [None]

NARRATIVE: CASE EVENT DATE: 20230123
